FAERS Safety Report 11240602 (Version 1)
Quarter: 2015Q3

REPORT INFORMATION
  Report Type: Spontaneous
  Country: US (occurrence: None)
  Receive Date: 20150701
  Receipt Date: 20150701
  Transmission Date: 20151125
  Serious: Yes (Hospitalization)
  Sender: FDA-Public Use
  Company Number: None

PATIENT
  Age: 52 Year
  Sex: Female
  Weight: 182.4 kg

DRUGS (1)
  1. TAXOL [Suspect]
     Active Substance: PACLITAXEL
     Indication: ENDOMETRIAL CANCER
     Dosage: TAXOL 438 MG IN 0.9% NACL 1.123ML 21 DAY CYCLE IV OVER 3 HOURS
     Route: 042
     Dates: start: 20150603

REACTIONS (1)
  - Colitis [None]

NARRATIVE: CASE EVENT DATE: 20150611
